FAERS Safety Report 26001551 (Version 1)
Quarter: 2025Q4

REPORT INFORMATION
  Report Type: Spontaneous
  Country: EU (occurrence: EU)
  Receive Date: 20251105
  Receipt Date: 20251105
  Transmission Date: 20260118
  Serious: Yes (Disabling)
  Sender: GUERBET
  Company Number: EU-GUERBETG-FR-20250456

PATIENT
  Age: 59 Year
  Sex: Female
  Weight: 93 kg

DRUGS (3)
  1. DOTAREM [Suspect]
     Active Substance: GADOTERATE MEGLUMINE
     Indication: Magnetic resonance imaging
     Route: 065
     Dates: start: 20250929, end: 20250929
  2. LEVOTHYROXINE [Concomitant]
     Active Substance: LEVOTHYROXINE
     Indication: Product used for unknown indication
  3. HERBALS\VITIS VINIFERA LEAF [Concomitant]
     Active Substance: HERBALS\VITIS VINIFERA LEAF
     Indication: Product used for unknown indication

REACTIONS (6)
  - Myalgia [Not Recovered/Not Resolved]
  - Arthralgia [Not Recovered/Not Resolved]
  - Tendon pain [Not Recovered/Not Resolved]
  - Pain in extremity [Not Recovered/Not Resolved]
  - Gait disturbance [Not Recovered/Not Resolved]
  - Migraine [Recovered/Resolved]

NARRATIVE: CASE EVENT DATE: 20251001
